FAERS Safety Report 4734935-7 (Version None)
Quarter: 2005Q3

REPORT INFORMATION
  Report Type: 
  Country: None (occurrence: None)
  Receive Date: 20050804
  Receipt Date: 20050722
  Transmission Date: 20060218
  Serious: Yes (Hospitalization)
  Sender: FDA-Public Use
  Company Number: US-KINGPHARMUSA00001-K200500988

PATIENT
  Age: 81 Year
  Sex: Female

DRUGS (13)
  1. ALTACE [Suspect]
     Indication: HYPERTONIA
     Route: 048
     Dates: end: 20050501
  2. MORPHINE [Suspect]
     Route: 048
     Dates: end: 20050501
  3. CITALOPRAM [Concomitant]
  4. ACETAMINOPHEN [Concomitant]
     Route: 048
  5. DUROFERON [Concomitant]
     Route: 048
  6. EMCONCOR  /BEL/ [Concomitant]
     Route: 048
  7. ASPIRIN [Concomitant]
     Route: 048
  8. SIMVASTATIN [Concomitant]
  9. FUROSEMIDE [Concomitant]
     Route: 048
  10. LACTULOSE [Concomitant]
     Route: 048
  11. OESTRIOL ^NM PHARMA^ [Concomitant]
     Route: 048
  12. TRIOBE [Concomitant]
     Route: 048
  13. NOVOMIX 30 [Concomitant]

REACTIONS (10)
  - ASTHENIA [None]
  - BLOOD CREATININE INCREASED [None]
  - BLOOD GLUCOSE DECREASED [None]
  - DEHYDRATION [None]
  - DEPRESSED LEVEL OF CONSCIOUSNESS [None]
  - FATIGUE [None]
  - GENERAL PHYSICAL HEALTH DETERIORATION [None]
  - HAEMOGLOBIN INCREASED [None]
  - HYPOTENSION [None]
  - LETHARGY [None]
